FAERS Safety Report 20516551 (Version 2)
Quarter: 2022Q1

REPORT INFORMATION
  Report Type: Report from Study
  Country: CO (occurrence: CO)
  Receive Date: 20220225
  Receipt Date: 20220225
  Transmission Date: 20220423
  Serious: Yes (Other)
  Sender: FDA-Public Use
  Company Number: CO-ABBVIE-22K-036-4288977-00

PATIENT
  Sex: Female
  Weight: 70 kg

DRUGS (1)
  1. HUMIRA [Suspect]
     Active Substance: ADALIMUMAB
     Indication: Ankylosing spondylitis
     Route: 058
     Dates: start: 202101

REACTIONS (6)
  - Spinal pain [Recovering/Resolving]
  - Inflammation [Recovering/Resolving]
  - Insomnia [Recovering/Resolving]
  - Musculoskeletal stiffness [Recovering/Resolving]
  - Blood triglycerides increased [Recovering/Resolving]
  - Blood cholesterol increased [Recovering/Resolving]

NARRATIVE: CASE EVENT DATE: 20220101
